FAERS Safety Report 10019580 (Version 1)
Quarter: 2014Q1

REPORT INFORMATION
  Report Type: Spontaneous
  Country: US (occurrence: US)
  Receive Date: 20140318
  Receipt Date: 20140318
  Transmission Date: 20141002
  Serious: Yes (Hospitalization)
  Sender: FDA-Public Use
  Company Number: US-ASTRAZENECA-2014SE18203

PATIENT
  Age: 65 Year
  Sex: Male
  Weight: 29.5 kg

DRUGS (12)
  1. SYMBICORT [Suspect]
     Indication: CHRONIC OBSTRUCTIVE PULMONARY DISEASE
     Dosage: 1 PUFF, TWO TIMES A DAY
     Route: 055
     Dates: start: 20140124, end: 20140313
  2. LISINOPRIL [Suspect]
     Indication: BLOOD PRESSURE ABNORMAL
     Route: 048
     Dates: end: 2014
  3. NIFEDIPINE [Concomitant]
     Indication: BLOOD PRESSURE ABNORMAL
     Route: 048
     Dates: start: 2014
  4. AMLODIPINE [Concomitant]
     Indication: BLOOD PRESSURE ABNORMAL
     Route: 048
     Dates: start: 201402, end: 201403
  5. FLOMAX [Concomitant]
     Indication: RENAL DISORDER
     Route: 048
     Dates: start: 2014
  6. CALCITONIN SALMON NASAL SPRAY [Concomitant]
     Indication: BONE DISORDER
     Route: 045
  7. ALBUTEROL [Concomitant]
     Indication: INHALATION THERAPY
     Dosage: PRN
     Route: 055
  8. NEBULIZER [Concomitant]
     Indication: CHRONIC OBSTRUCTIVE PULMONARY DISEASE
     Route: 055
  9. ASPIRIN [Concomitant]
     Route: 048
  10. VITAMIN B12 [Concomitant]
     Dosage: NOT REPORTED, MONTH
  11. COREG [Concomitant]
  12. FLOVENT [Concomitant]

REACTIONS (4)
  - Chronic obstructive pulmonary disease [Recovering/Resolving]
  - Blood pressure inadequately controlled [Recovering/Resolving]
  - Drug dose omission [Not Recovered/Not Resolved]
  - Off label use [Not Recovered/Not Resolved]
